FAERS Safety Report 9187774 (Version 1)
Quarter: 2013Q1

REPORT INFORMATION
  Report Type: Spontaneous
  Country: US (occurrence: US)
  Receive Date: 20130325
  Receipt Date: 20130325
  Transmission Date: 20140127
  Serious: No
  Sender: FDA-Public Use
  Company Number: US-009507513-1303USA008701

PATIENT
  Age: 58 Year
  Sex: Female

DRUGS (1)
  1. SAPHRIS [Suspect]
     Dosage: 10 MG, BID
     Route: 048
     Dates: start: 20130307, end: 201303

REACTIONS (1)
  - Alopecia [Unknown]
